FAERS Safety Report 7482221-7 (Version None)
Quarter: 2011Q2

REPORT INFORMATION
  Report Type: 
  Country: None (occurrence: None)
  Receive Date: 20110516
  Receipt Date: 20110506
  Transmission Date: 20111010
  Serious: No
  Sender: FDA-Public Use
  Company Number: US-PFIZER INC-2011098731

PATIENT
  Sex: Female

DRUGS (3)
  1. GABAPENTIN [Suspect]
     Dosage: 2700 MG, A DAY
  2. CYCLOBENZAPRINE [Suspect]
     Dosage: UNK
  3. HYDROCODONE [Suspect]
     Dosage: UNK

REACTIONS (2)
  - FEELING ABNORMAL [None]
  - PAIN [None]
